FAERS Safety Report 7623726-5 (Version None)
Quarter: 2011Q3

REPORT INFORMATION
  Report Type: 
  Country: None (occurrence: None)
  Receive Date: 20110720
  Receipt Date: 20110713
  Transmission Date: 20111222
  Serious: Yes (Death, Hospitalization)
  Sender: FDA-Public Use
  Company Number: US-GLAXOSMITHKLINE-A0936668A

PATIENT
  Age: 73 Year
  Sex: Male

DRUGS (6)
  1. AVODART [Suspect]
     Indication: BENIGN PROSTATIC HYPERPLASIA
     Dosage: .5MG PER DAY
     Route: 048
     Dates: start: 20100822, end: 20110601
  2. VITAMIN TAB [Concomitant]
  3. UNSPECIFIED MEDICATION [Concomitant]
  4. CHEMOTHERAPY [Suspect]
  5. HEART MEDICATION [Concomitant]
  6. ANTIEMETIC [Concomitant]

REACTIONS (3)
  - NAUSEA [None]
  - DEATH [None]
  - ASTHENIA [None]
